FAERS Safety Report 4335563-8 (Version None)
Quarter: 2004Q2

REPORT INFORMATION
  Report Type: 
  Country: None (occurrence: None)
  Receive Date: 20040406
  Receipt Date: 20040323
  Transmission Date: 20050107
  Serious: Yes (Death, Hospitalization)
  Sender: FDA-Public Use
  Company Number: 193501

PATIENT
  Age: 54 Year
  Sex: Female

DRUGS (6)
  1. AVONEX [Suspect]
     Indication: MULTIPLE SCLEROSIS
     Dosage: 30 MCG QW IM
     Route: 030
     Dates: start: 20010124, end: 20040101
  2. AVONEX [Suspect]
     Indication: MULTIPLE SCLEROSIS
     Dosage: 30 MCG QW IM
     Route: 030
     Dates: start: 20040202, end: 20040226
  3. PAXIL [Concomitant]
  4. PROVIGIL [Concomitant]
  5. EVISTA [Concomitant]
  6. VALIUM [Concomitant]

REACTIONS (1)
  - CARDIAC ARREST [None]
